FAERS Safety Report 12276260 (Version 1)
Quarter: 2016Q2

REPORT INFORMATION
  Report Type: Report from Study
  Country: CA (occurrence: CA)
  Receive Date: 20160418
  Receipt Date: 20160418
  Transmission Date: 20160815
  Serious: Yes (Other)
  Sender: FDA-Public Use
  Company Number: CA-ROCHE-1557278

PATIENT
  Age: 70 Year
  Sex: Female
  Weight: 32.7 kg

DRUGS (20)
  1. TYLENOL [Concomitant]
     Active Substance: ACETAMINOPHEN
     Indication: PREMEDICATION
     Route: 048
     Dates: start: 20150326
  2. ONE ALPHA [Concomitant]
     Active Substance: ALFACALCIDOL
  3. VITAMIN B12 [Concomitant]
     Active Substance: CYANOCOBALAMIN
  4. SPIRIVA [Concomitant]
     Active Substance: TIOTROPIUM BROMIDE MONOHYDRATE
  5. DOCUSATE [Concomitant]
     Active Substance: DOCUSATE
  6. RITUXAN [Suspect]
     Active Substance: RITUXIMAB
     Indication: RHEUMATOID ARTHRITIS
     Route: 042
     Dates: start: 20151002
  7. NITRO SPRAY (NO OTHER INFORMATION IS AVAILABLE) [Concomitant]
  8. ASAPHEN [Concomitant]
     Active Substance: ASPIRIN
  9. LIPIDIL SUPRA [Concomitant]
  10. BENADRYL [Concomitant]
     Active Substance: DIPHENHYDRAMINE HYDROCHLORIDE
     Indication: PREMEDICATION
     Route: 048
     Dates: start: 20150326
  11. RISEDRONATE [Concomitant]
     Active Substance: RISEDRONATE SODIUM
  12. VENTOLIN [Concomitant]
     Active Substance: ALBUTEROL SULFATE
  13. PREDNISONE. [Concomitant]
     Active Substance: PREDNISONE
  14. TOPICORT (CANADA) [Concomitant]
     Route: 065
  15. FUROSEMIDE. [Concomitant]
     Active Substance: FUROSEMIDE
  16. NORVASC [Concomitant]
     Active Substance: AMLODIPINE BESYLATE
  17. D-TABS [Concomitant]
     Active Substance: CHOLECALCIFEROL
  18. RITUXAN [Suspect]
     Active Substance: RITUXIMAB
     Indication: GRANULOMATOSIS WITH POLYANGIITIS
     Route: 042
     Dates: start: 20150326
  19. ATIVAN [Concomitant]
     Active Substance: LORAZEPAM
  20. ATENOLOL. [Concomitant]
     Active Substance: ATENOLOL

REACTIONS (23)
  - Chills [Recovered/Resolved]
  - Heart rate decreased [Unknown]
  - Dysphonia [Recovering/Resolving]
  - Infusion related reaction [Unknown]
  - Oral pruritus [Unknown]
  - Dyspnoea [Recovering/Resolving]
  - Blood pressure increased [Unknown]
  - Pain in extremity [Not Recovered/Not Resolved]
  - Weight decreased [Unknown]
  - Hepatic enzyme increased [Unknown]
  - Hypoaesthesia oral [Unknown]
  - Tooth abscess [Unknown]
  - Arthralgia [Not Recovered/Not Resolved]
  - Blood pressure fluctuation [Unknown]
  - Blood pressure increased [Unknown]
  - Cough [Recovering/Resolving]
  - Bleeding varicose vein [Unknown]
  - Chest discomfort [Unknown]
  - Muscle spasms [Recovered/Resolved]
  - Chest discomfort [Recovered/Resolved]
  - Musculoskeletal stiffness [Not Recovered/Not Resolved]
  - Spinal fracture [Not Recovered/Not Resolved]
  - Bronchitis [Recovered/Resolved]

NARRATIVE: CASE EVENT DATE: 20150326
